FAERS Safety Report 25316653 (Version 1)
Quarter: 2025Q2

REPORT INFORMATION
  Report Type: Spontaneous
  Country: IT (occurrence: IT)
  Receive Date: 20250515
  Receipt Date: 20250515
  Transmission Date: 20250717
  Serious: Yes (Other)
  Sender: DR REDDYS
  Company Number: IT-GERMAN-ITA/2025/05/006888

PATIENT
  Age: 64 Year
  Sex: Female

DRUGS (2)
  1. BORTEZOMIB [Suspect]
     Active Substance: BORTEZOMIB
     Indication: Thrombotic thrombocytopenic purpura
  2. BORTEZOMIB [Suspect]
     Active Substance: BORTEZOMIB

REACTIONS (2)
  - Neurotoxicity [Unknown]
  - Product use in unapproved indication [Unknown]
